FAERS Safety Report 7753862-4 (Version None)
Quarter: 2011Q3

REPORT INFORMATION
  Report Type: 
  Country: None (occurrence: None)
  Receive Date: 20110915
  Receipt Date: 20110908
  Transmission Date: 20111222
  Serious: Yes (Disabling, Other)
  Sender: FDA-Public Use
  Company Number: BR-PFIZER INC-2011211933

PATIENT
  Age: 76 Year
  Sex: Male
  Weight: 90 kg

DRUGS (2)
  1. VIAGRA [Suspect]
     Indication: ERECTILE DYSFUNCTION
     Dosage: UNK
     Route: 048
     Dates: start: 20090101
  2. VIAGRA [Suspect]
     Dosage: A FOURTH OF A 25MG TABLET WEEKLY
     Route: 048
     Dates: start: 20090101, end: 20110901

REACTIONS (4)
  - RETINAL DEGENERATION [None]
  - VISUAL ACUITY REDUCED [None]
  - BLINDNESS [None]
  - GLAUCOMA [None]
